FAERS Safety Report 4269545-1 (Version None)
Quarter: 2004Q1

REPORT INFORMATION
  Report Type: 
  Country: None (occurrence: None)
  Receive Date: 20040113
  Receipt Date: 20031106
  Transmission Date: 20041129
  Serious: Yes (Other)
  Sender: FDA-Public Use
  Company Number: PHFR2003GB04340

PATIENT
  Age: 54 Year
  Sex: Female

DRUGS (2)
  1. CLOZARIL [Suspect]
     Indication: SCHIZOPHRENIA
     Route: 048
     Dates: start: 19970516, end: 20031029
  2. CLOZARIL [Suspect]
     Route: 048
     Dates: start: 20031106

REACTIONS (1)
  - DIABETES MELLITUS INADEQUATE CONTROL [None]
